FAERS Safety Report 7599313-4 (Version None)
Quarter: 2011Q3

REPORT INFORMATION
  Report Type: 
  Country: None (occurrence: None)
  Receive Date: 20110711
  Receipt Date: 20110628
  Transmission Date: 20111222
  Serious: Yes (Other)
  Sender: FDA-Public Use
  Company Number: JP-BAYER-2011-056265

PATIENT
  Age: 38 Year
  Sex: Female

DRUGS (1)
  1. YAZ [Suspect]
     Dosage: 1 DF, QD
     Route: 048

REACTIONS (1)
  - DEAFNESS [None]
